FAERS Safety Report 4301492-9 (Version None)
Quarter: 2004Q1

REPORT INFORMATION
  Report Type: 
  Country: None (occurrence: None)
  Receive Date: 20040219
  Receipt Date: 20040210
  Transmission Date: 20041129
  Serious: Yes (Other)
  Sender: FDA-Public Use
  Company Number: GB-JNJFOC-20040202208

PATIENT
  Age: 70 Year
  Sex: Female

DRUGS (8)
  1. REMICADE [Suspect]
     Indication: RHEUMATOID ARTHRITIS
     Dosage: 261 MG, INTRAVENOUS
     Route: 042
     Dates: start: 20030708, end: 20030801
  2. AZATHIOPRINE [Concomitant]
  3. PREDNISOLONE [Concomitant]
  4. VALSARTAN (VALSARTAN) [Concomitant]
  5. THYROXINE (LEVOTHYROXINE SODIUM) [Concomitant]
  6. CO-CODAMDOL (PANADEINE CO) [Concomitant]
  7. RANITIDINE [Concomitant]
  8. BUMETANIDE [Concomitant]

REACTIONS (2)
  - LIGHT CHAIN ANALYSIS INCREASED [None]
  - MULTIPLE MYELOMA [None]
